FAERS Safety Report 21303078 (Version 1)
Quarter: 2022Q3

REPORT INFORMATION
  Report Type: Spontaneous
  Country: US (occurrence: None)
  Receive Date: 20220907
  Receipt Date: 20220907
  Transmission Date: 20221027
  Serious: Yes (Other)
  Sender: FDA-Public Use
  Company Number: None

PATIENT
  Age: 79 Year
  Sex: Male
  Weight: 83.25 kg

DRUGS (1)
  1. XTANDI [Suspect]
     Active Substance: ENZALUTAMIDE
     Indication: Prostate cancer metastatic
     Dosage: FREQUENCY : DAILY;?
     Route: 048
     Dates: start: 20220808

REACTIONS (7)
  - Fatigue [None]
  - Asthenia [None]
  - Decreased appetite [None]
  - Asthenia [None]
  - Fall [None]
  - Parkinson^s disease [None]
  - Condition aggravated [None]

NARRATIVE: CASE EVENT DATE: 20220830
